FAERS Safety Report 14971624 (Version 2)
Quarter: 2019Q1

REPORT INFORMATION
  Report Type: Spontaneous
  Country: IT (occurrence: IT)
  Receive Date: 20180604
  Receipt Date: 20190214
  Transmission Date: 20190417
  Serious: Yes (Other)
  Sender: FDA-Public Use
  Company Number: IT-MYLANLABS-2018M1036109

PATIENT
  Sex: Female

DRUGS (4)
  1. PREDNISONE. [Suspect]
     Active Substance: PREDNISONE
     Indication: SYDENHAM^S CHOREA
  2. PREDNISONE. [Suspect]
     Active Substance: PREDNISONE
     Indication: CHOREA
     Dosage: 1 MG/KG, QD
     Route: 065
  3. CHLORPROMAZINE. [Suspect]
     Active Substance: CHLORPROMAZINE
     Indication: CHOREA
     Dosage: 1 MG/KG, QD
     Route: 065
  4. CHLORPROMAZINE. [Suspect]
     Active Substance: CHLORPROMAZINE
     Indication: SYDENHAM^S CHOREA

REACTIONS (1)
  - Parkinsonism [Recovered/Resolved]
